FAERS Safety Report 4955874-2 (Version None)
Quarter: 2006Q1

REPORT INFORMATION
  Report Type: 
  Country: None (occurrence: None)
  Receive Date: 20060327
  Receipt Date: 20060327
  Transmission Date: 20060701
  Serious: Yes (Other)
  Sender: FDA-Public Use
  Company Number: None

PATIENT
  Sex: Male
  Weight: 88.905 kg

DRUGS (9)
  1. LOSARTAN POTASSIUM [Suspect]
     Indication: HYPERTENSION
     Dosage: 1 TAB DAILY
     Dates: start: 20050823, end: 20051208
  2. CITALOPRAM [Concomitant]
  3. DIAZEPAM [Concomitant]
  4. FLUNISOLIDE [Concomitant]
  5. GEMFIBROZIL [Concomitant]
  6. HYDROCHLOROTHIAZIDE [Concomitant]
  7. LOVASTATIN-HT [Concomitant]
  8. PSEUDO 50/TRIPROLIDINE [Concomitant]
  9. SILDENAFIL [Concomitant]

REACTIONS (1)
  - COUGH [None]
